FAERS Safety Report 12879439 (Version 1)
Quarter: 2016Q4

REPORT INFORMATION
  Report Type: Spontaneous
  Country: PL (occurrence: PL)
  Receive Date: 20161025
  Receipt Date: 20161025
  Transmission Date: 20170207
  Serious: Yes (Other)
  Sender: FDA-Public Use
  Company Number: PL-ROCHE-1844086

PATIENT

DRUGS (2)
  1. VEMURAFENIB [Suspect]
     Active Substance: VEMURAFENIB
     Indication: SKIN CANCER
     Route: 065
  2. COBIMETINIB [Suspect]
     Active Substance: COBIMETINIB
     Indication: SKIN CANCER
     Route: 065

REACTIONS (12)
  - Chills [Unknown]
  - Pyrexia [Unknown]
  - Diarrhoea [Unknown]
  - Arthralgia [Unknown]
  - Keratoacanthoma [Unknown]
  - Squamous cell carcinoma [Unknown]
  - Ejection fraction decreased [Unknown]
  - Chorioretinopathy [Unknown]
  - Nausea [Unknown]
  - Hypersensitivity [Unknown]
  - Vomiting [Unknown]
  - Rash [Unknown]
